FAERS Safety Report 7088984-7 (Version None)
Quarter: 2010Q4

REPORT INFORMATION
  Report Type: 
  Country: None (occurrence: None)
  Receive Date: 20101108
  Receipt Date: 20101028
  Transmission Date: 20110411
  Serious: Yes (Hospitalization)
  Sender: FDA-Public Use
  Company Number: DK-ASTRAZENECA-2010SE52066

PATIENT
  Sex: Female
  Weight: 58 kg

DRUGS (3)
  1. SEROQUEL XR [Suspect]
     Indication: BIPOLAR DISORDER
     Route: 048
     Dates: start: 20101012, end: 20101022
  2. DESOGESTREL AND ETHINYL ESTRADIOL [Concomitant]
     Indication: CONTRACEPTION
     Dosage: DAILY
     Route: 048
     Dates: start: 20100201, end: 20101017
  3. OXAZEPAM ^SAD^ [Concomitant]
     Indication: ANXIETY
     Route: 048
     Dates: start: 20101008

REACTIONS (1)
  - DEEP VEIN THROMBOSIS [None]
